FAERS Safety Report 23970611 (Version 1)
Quarter: 2024Q2

REPORT INFORMATION
  Report Type: Spontaneous
  Country: FR (occurrence: FR)
  Receive Date: 20240613
  Receipt Date: 20240613
  Transmission Date: 20240716
  Serious: Yes (Hospitalization, Other)
  Sender: FDA-Public Use
  Company Number: None

PATIENT
  Age: 73 Year
  Sex: Female

DRUGS (8)
  1. CYCLOPHOSPHAMIDE [Suspect]
     Active Substance: CYCLOPHOSPHAMIDE
     Indication: Lymphodepletion
     Dosage: 900 MG, EVERY 1 DAY
     Route: 042
     Dates: start: 20230812, end: 20230814
  2. FLUDARABINE PHOSPHATE [Suspect]
     Active Substance: FLUDARABINE PHOSPHATE
     Indication: Lymphodepletion
     Dosage: 50 MG, EVERY 1 DAY
     Route: 042
     Dates: start: 20230812, end: 20230814
  3. DEXAMETHASONE [Suspect]
     Active Substance: DEXAMETHASONE
     Indication: Immune effector cell-associated neurotoxicity syndrome
     Dosage: 40 MG, EVERY 1 DAY
     Route: 042
     Dates: start: 20230825, end: 20230830
  4. DEXAMETHASONE [Suspect]
     Active Substance: DEXAMETHASONE
     Dosage: 30 MG, EVERY 1 DAY
     Route: 042
     Dates: start: 20230901, end: 20230906
  5. TECARTUS [Suspect]
     Active Substance: BREXUCABTAGENE AUTOLEUCEL
     Indication: Mantle cell lymphoma recurrent
     Dosage: 1 DOSAGE FORM, ONCE TOTAL
     Route: 042
     Dates: start: 20230817, end: 20230817
  6. REVLIMID [Suspect]
     Active Substance: LENALIDOMIDE
     Indication: Mantle cell lymphoma recurrent
     Dosage: 25 MG, EVERY 1 DAY
     Route: 048
     Dates: start: 20230711, end: 20230801
  7. TOCILIZUMAB [Suspect]
     Active Substance: TOCILIZUMAB
     Indication: Cytokine release syndrome
     Dosage: 1950 MG, EVERY 1 DAY
     Route: 042
     Dates: start: 20230820, end: 20230824
  8. RITUXIMAB [Concomitant]
     Active Substance: RITUXIMAB
     Dosage: 700 MG, ONCE TOTAL (MAMMAL/ CHO CELLS)
     Route: 042
     Dates: start: 20230711, end: 20230711

REACTIONS (1)
  - Duodenal ulcer [Recovered/Resolved]

NARRATIVE: CASE EVENT DATE: 20230904
